FAERS Safety Report 24158570 (Version 2)
Quarter: 2025Q1

REPORT INFORMATION
  Report Type: Report from Study
  Country: US (occurrence: US)
  Receive Date: 20240731
  Receipt Date: 20250205
  Transmission Date: 20250409
  Serious: No
  Sender: AURINIA PHARMACEUTICALS
  Company Number: US-AURINIA PHARMACEUTICALS INC.-AUR-005983

PATIENT
  Age: 28 Year
  Sex: Female
  Weight: 65.76 kg

DRUGS (6)
  1. LUPKYNIS [Suspect]
     Active Substance: VOCLOSPORIN
     Indication: Lupus nephritis
     Dosage: 23.7 MILLIGRAM, BID
     Route: 048
     Dates: start: 20240321
  2. LUPKYNIS [Suspect]
     Active Substance: VOCLOSPORIN
     Indication: Hypertension
     Dosage: 23.7 MILLIGRAM, QD
     Route: 048
     Dates: start: 20240331
  3. LUPKYNIS [Suspect]
     Active Substance: VOCLOSPORIN
     Dosage: 23.7 MILLIGRAM, BID
     Route: 048
     Dates: start: 20240319
  4. PENICILLIN V [Suspect]
     Active Substance: PENICILLIN V
     Indication: Nasopharyngitis
     Route: 042
  5. CELLCEPT [Concomitant]
     Active Substance: MYCOPHENOLATE MOFETIL
     Indication: Product used for unknown indication
  6. PREDNISONE [Concomitant]
     Active Substance: PREDNISONE
     Indication: Product used for unknown indication

REACTIONS (12)
  - Vomiting [Unknown]
  - Feeling abnormal [Recovered/Resolved]
  - Dyspnoea [Recovered/Resolved]
  - Heart rate increased [Recovered/Resolved]
  - Insomnia [Recovered/Resolved]
  - Nasopharyngitis [Unknown]
  - Food poisoning [Unknown]
  - Viral infection [Unknown]
  - Oropharyngeal pain [Unknown]
  - Dysphagia [Unknown]
  - Somnolence [Not Recovered/Not Resolved]
  - Intentional dose omission [Unknown]

NARRATIVE: CASE EVENT DATE: 20240501
